FAERS Safety Report 16772813 (Version 1)
Quarter: 2019Q3

REPORT INFORMATION
  Report Type: Spontaneous
  Country: US (occurrence: US)
  Receive Date: 20190904
  Receipt Date: 20190904
  Transmission Date: 20191005
  Serious: Yes (Hospitalization)
  Sender: FDA-Public Use
  Company Number: US-B.I. PHARMACEUTICALS,INC./RIDGEFIELD-2019-BI-035297

PATIENT
  Age: 23 Month
  Sex: Female
  Weight: 15 kg

DRUGS (1)
  1. CATAPRESAN [Suspect]
     Active Substance: CLONIDINE
     Indication: PRODUCT USED FOR UNKNOWN INDICATION
     Dosage: BOTTLE OF CLONIDINE 0.1 MG AND 8 TABLETS MISSING
     Route: 065

REACTIONS (1)
  - Overdose [Recovered/Resolved]
